FAERS Safety Report 19440393 (Version 2)
Quarter: 2022Q1

REPORT INFORMATION
  Report Type: Spontaneous
  Country: GB (occurrence: GB)
  Receive Date: 20210621
  Receipt Date: 20220208
  Transmission Date: 20220423
  Serious: Yes (Life-Threatening, Other)
  Sender: FDA-Public Use
  Company Number: GB-MHRA-INPAB23A9D7-932D-4872-9575-6DF0BE0EDB29

PATIENT
  Age: 34 Year
  Sex: Male

DRUGS (32)
  1. DULOXETINE [Suspect]
     Active Substance: DULOXETINE
     Indication: Depressed mood
     Dosage: 60 MILLIGRAM
     Route: 065
     Dates: start: 20210329, end: 20210608
  2. AMITRIPTYLINE [Concomitant]
     Active Substance: AMITRIPTYLINE
     Indication: Product used for unknown indication
     Dosage: TAKE THREE TABLET AT 6 PM
     Route: 065
     Dates: start: 20210315
  3. AMITRIPTYLINE [Concomitant]
     Active Substance: AMITRIPTYLINE
     Dosage: UNK ( TAKE 3 TABLET AT 6 PM)
     Route: 065
     Dates: start: 20210329
  4. AMITRIPTYLINE [Concomitant]
     Active Substance: AMITRIPTYLINE
     Dosage: UNK ( TAKE 3 TABLET AT 6 PM)
     Route: 065
     Dates: start: 20210413
  5. AMITRIPTYLINE [Concomitant]
     Active Substance: AMITRIPTYLINE
     Dosage: UNK ( TAKE 3 TABLET AT 6 PM)
     Route: 065
     Dates: start: 20210426
  6. AMITRIPTYLINE [Concomitant]
     Active Substance: AMITRIPTYLINE
     Dosage: UNK ( TAKE 3 TABLET AT 6 PM)
     Route: 065
     Dates: start: 20210506
  7. AMITRIPTYLINE [Concomitant]
     Active Substance: AMITRIPTYLINE
     Dosage: UNK ( TAKE 3 TABLET AT 6 PM)
     Route: 065
     Dates: start: 20210520
  8. AMITRIPTYLINE [Concomitant]
     Active Substance: AMITRIPTYLINE
     Dosage: UNK ( TAKE 3 TABLET AT 6 PM)
     Route: 065
     Dates: start: 20210602
  9. DULOXETINE [Concomitant]
     Active Substance: DULOXETINE
     Indication: Product used for unknown indication
     Dosage: ONE DAILY
     Route: 065
     Dates: start: 20210426
  10. DULOXETINE [Concomitant]
     Active Substance: DULOXETINE
     Dosage: ONE DAILY
     Route: 065
     Dates: start: 20210506
  11. LANSOPRAZOLE [Concomitant]
     Active Substance: LANSOPRAZOLE
     Indication: Product used for unknown indication
     Dosage: 1 EVERY DAY WITH NAPROXEN
     Route: 065
     Dates: start: 20210315
  12. LANSOPRAZOLE [Concomitant]
     Active Substance: LANSOPRAZOLE
     Dosage: UNK ( 1 EVERY DAY WITH NAPROXEN)
     Route: 065
     Dates: start: 20210413
  13. LANSOPRAZOLE [Concomitant]
     Active Substance: LANSOPRAZOLE
     Dosage: UNK ( 1 EVERY DAY WITH NAPROXEN)
     Route: 065
     Dates: start: 20210426
  14. LANSOPRAZOLE [Concomitant]
     Active Substance: LANSOPRAZOLE
     Dosage: UNK ( 1 EVERY DAY WITH NAPROXEN)
     Route: 065
     Dates: start: 20210520
  15. NAPROXEN [Concomitant]
     Active Substance: NAPROXEN
     Indication: Product used for unknown indication
     Dosage: UNK,(1 TABLET TWICE DAILY)
     Route: 065
     Dates: start: 20210315
  16. NAPROXEN [Concomitant]
     Active Substance: NAPROXEN
     Dosage: 1 TABLET TWICE DAILY
     Route: 065
     Dates: start: 20210329
  17. NAPROXEN [Concomitant]
     Active Substance: NAPROXEN
     Dosage: UNK (1 TABLET TWICE DAILY)
     Route: 065
     Dates: start: 20210407
  18. NAPROXEN [Concomitant]
     Active Substance: NAPROXEN
     Dosage: UNK,(1 TABLET TWICE DAILY)
     Route: 065
     Dates: start: 20210413
  19. NAPROXEN [Concomitant]
     Active Substance: NAPROXEN
     Dosage: UNK,(1 TABLET TWICE DAILY)
     Route: 065
     Dates: start: 20210426
  20. NAPROXEN [Concomitant]
     Active Substance: NAPROXEN
     Dosage: UNK,(1 TABLET TWICE DAILY)
     Route: 065
     Dates: start: 20210506
  21. NAPROXEN [Concomitant]
     Active Substance: NAPROXEN
     Dosage: UNK,(1 TABLET TWICE DAILY)
     Route: 065
     Dates: start: 20210520
  22. NAPROXEN [Concomitant]
     Active Substance: NAPROXEN
     Dosage: UNK,(1 TABLET TWICE DAILY)
     Route: 065
     Dates: start: 20210602
  23. PREGABALIN [Concomitant]
     Active Substance: PREGABALIN
     Indication: Product used for unknown indication
     Dosage: TAKE ONE THREE TIMES A DAY
     Route: 065
     Dates: start: 20210315
  24. PREGABALIN [Concomitant]
     Active Substance: PREGABALIN
     Dosage: UNK ( TAKE 1, 3 TIMES A DAY
     Route: 065
     Dates: start: 20210329
  25. PREGABALIN [Concomitant]
     Active Substance: PREGABALIN
     Dosage: UNK ( TAKE  1, 3 TIMES A DAY)
     Route: 065
     Dates: start: 20210413
  26. PREGABALIN [Concomitant]
     Active Substance: PREGABALIN
     Dosage: UNK (TAKE  1, 3 TIMES A DAY)
     Route: 065
     Dates: start: 20210426
  27. PREGABALIN [Concomitant]
     Active Substance: PREGABALIN
     Dosage: UNK( TAKE 1, 3 TIMES A DAY
     Route: 065
     Dates: start: 20210506
  28. PREGABALIN [Concomitant]
     Active Substance: PREGABALIN
     Dosage: UNK (TAKE 1 , 3 TIMES A DAY
     Route: 065
     Dates: start: 20210520
  29. PREGABALIN [Concomitant]
     Active Substance: PREGABALIN
     Dosage: UNK (TAKE 1, 3 TIMES A DAY
     Route: 065
     Dates: start: 20210602
  30. TRAZODONE [Concomitant]
     Active Substance: TRAZODONE HYDROCHLORIDE
     Indication: Product used for unknown indication
     Dosage: 1 TABLET DAILY AT NIGHT
     Route: 065
     Dates: start: 20210602
  31. ZOPICLONE [Concomitant]
     Active Substance: ZOPICLONE
     Indication: Product used for unknown indication
     Dosage: 1 TABLET AT NIGHT
     Route: 065
     Dates: start: 20210413
  32. ZOPICLONE [Concomitant]
     Active Substance: ZOPICLONE
     Dosage: UNK ( 1 TABLET AT NIGHT IF NEEDED)
     Route: 065
     Dates: start: 20210426

REACTIONS (2)
  - Contusion [Recovering/Resolving]
  - Hepatic enzyme increased [Recovered/Resolved]

NARRATIVE: CASE EVENT DATE: 20210426
